FAERS Safety Report 13950044 (Version 1)
Quarter: 2017Q3

REPORT INFORMATION
  Report Type: Spontaneous
  Country: US (occurrence: US)
  Receive Date: 20170908
  Receipt Date: 20170908
  Transmission Date: 20171128
  Serious: No
  Sender: FDA-Public Use
  Company Number: US-ROCHE-1134631

PATIENT
  Sex: Male

DRUGS (2)
  1. CEFTIN [Concomitant]
     Active Substance: CEFUROXIME AXETIL
     Route: 048
  2. RITUXAN [Suspect]
     Active Substance: RITUXIMAB
     Indication: CHRONIC LYMPHOCYTIC LEUKAEMIA
     Route: 050
     Dates: start: 19981102

REACTIONS (4)
  - Nasal congestion [Unknown]
  - Hypoacusis [Unknown]
  - Chronic sinusitis [Unknown]
  - Asthenia [Unknown]
